FAERS Safety Report 7652152-8 (Version None)
Quarter: 2011Q3

REPORT INFORMATION
  Report Type: 
  Country: None (occurrence: None)
  Receive Date: 20110803
  Receipt Date: 20110720
  Transmission Date: 20111222
  Serious: Yes (Hospitalization)
  Sender: FDA-Public Use
  Company Number: US-BAYER-201014066NA

PATIENT
  Age: 20 Year
  Sex: Female
  Weight: 80 kg

DRUGS (7)
  1. DROSPIRENONE AND ETHINYL ESTRADIOL [Suspect]
     Indication: ACNE
     Dosage: UNK
     Route: 048
     Dates: start: 20060801, end: 20090501
  2. DROSPIRENONE AND ETHINYL ESTRADIOL [Suspect]
     Indication: MENSTRUAL CYCLE MANAGEMENT
  3. YASMIN [Suspect]
     Indication: ACNE
     Dosage: UNK
     Route: 048
     Dates: start: 20060801, end: 20090501
  4. ZITHROMAX [Concomitant]
  5. DROSPIRENONE AND ETHINYL ESTRADIOL [Suspect]
     Indication: ORAL CONTRACEPTION
  6. YASMIN [Suspect]
     Indication: MENSTRUAL CYCLE MANAGEMENT
  7. YASMIN [Suspect]
     Indication: ORAL CONTRACEPTION

REACTIONS (7)
  - CHOLECYSTITIS CHRONIC [None]
  - ABDOMINAL PAIN UPPER [None]
  - CHOLELITHIASIS [None]
  - ABDOMINAL PAIN [None]
  - EATING DISORDER [None]
  - BILIARY COLIC [None]
  - GALLBLADDER CHOLESTEROLOSIS [None]
